FAERS Safety Report 10378907 (Version 1)
Quarter: 2014Q3

REPORT INFORMATION
  Report Type: Other
  Country: KR (occurrence: KR)
  Receive Date: 20140812
  Receipt Date: 20140812
  Transmission Date: 20150326
  Serious: Yes (Other)
  Sender: FDA-Public Use
  Company Number: KR-BRISTOL-MYERS SQUIBB COMPANY-21281746

PATIENT
  Age: 77 Year
  Sex: Female

DRUGS (10)
  1. CLOPIDOGREL BISULFATE. [Concomitant]
     Active Substance: CLOPIDOGREL BISULFATE
     Indication: CEREBROVASCULAR ACCIDENT PROPHYLAXIS
  2. LICORICE. [Suspect]
     Active Substance: LICORICE
     Indication: INSOMNIA
     Route: 048
  3. LICORICE. [Suspect]
     Active Substance: LICORICE
     Indication: PALPITATIONS
     Route: 048
  4. CALCIUM CARBONATE. [Concomitant]
     Active Substance: CALCIUM CARBONATE
  5. PRAVASTATIN SODIUM. [Concomitant]
     Active Substance: PRAVASTATIN SODIUM
     Indication: DYSLIPIDAEMIA
  6. LICORICE. [Suspect]
     Active Substance: LICORICE
     Indication: DIARRHOEA
     Route: 048
  7. NICERGOLINE [Concomitant]
     Active Substance: NICERGOLINE
  8. DONEPEZIL [Concomitant]
     Active Substance: DONEPEZIL
  9. METFORMIN HCL [Suspect]
     Active Substance: METFORMIN HYDROCHLORIDE
     Indication: DIABETES MELLITUS
     Route: 048
  10. AMLODIPINE [Concomitant]
     Active Substance: AMLODIPINE BESYLATE
     Indication: HYPERTENSION

REACTIONS (2)
  - Diarrhoea [Unknown]
  - Hypokalaemia [Unknown]
